FAERS Safety Report 5055389-X (Version None)
Quarter: 2006Q3

REPORT INFORMATION
  Report Type: 
  Country: None (occurrence: None)
  Receive Date: 20060719
  Receipt Date: 20060523
  Transmission Date: 20061208
  Serious: Yes (Hospitalization)
  Sender: FDA-Public Use
  Company Number: JP-BOEHRINGER INGELHEIM PHARMACEUTICALS, INC.-2006-BP-05942NB

PATIENT
  Sex: Male
  Weight: 66.5 kg

DRUGS (4)
  1. MICARDIS [Suspect]
     Indication: HYPERTENSION
     Route: 048
     Dates: start: 20060424, end: 20060430
  2. ZITHROMAC [Concomitant]
     Route: 048
  3. FLOMOX [Concomitant]
     Indication: PHARYNGITIS
     Route: 048
     Dates: start: 20060411, end: 20060413
  4. AVELOX [Concomitant]
     Indication: PHARYNGITIS
     Route: 048
     Dates: start: 20060417, end: 20060421

REACTIONS (1)
  - INTERSTITIAL LUNG DISEASE [None]
